FAERS Safety Report 17514018 (Version 8)
Quarter: 2021Q4

REPORT INFORMATION
  Report Type: Other
  Country: CA (occurrence: None)
  Receive Date: 20200308
  Receipt Date: 20211231
  Transmission Date: 20220303
  Serious: Yes (Other)
  Sender: FDA-Public Use
  Company Number: CA-ROCHE-2562772

PATIENT
  Age: 49 Year
  Sex: Female
  Weight: 102 kg

DRUGS (30)
  1. ACTEMRA [Suspect]
     Active Substance: TOCILIZUMAB
     Indication: Rheumatoid arthritis
     Route: 042
     Dates: start: 20101208, end: 20120213
  2. ACTEMRA [Suspect]
     Active Substance: TOCILIZUMAB
     Dosage: SUSPENDED
     Route: 042
     Dates: start: 20120410, end: 20130904
  3. ACTEMRA [Suspect]
     Active Substance: TOCILIZUMAB
     Route: 042
     Dates: start: 20131022, end: 20140430
  4. ACTEMRA [Suspect]
     Active Substance: TOCILIZUMAB
     Route: 042
     Dates: start: 20140529, end: 20150202
  5. ACTEMRA [Suspect]
     Active Substance: TOCILIZUMAB
     Route: 042
     Dates: start: 20150317, end: 20160301
  6. ACTEMRA [Suspect]
     Active Substance: TOCILIZUMAB
     Route: 042
     Dates: start: 20160421, end: 20160421
  7. ACTEMRA [Suspect]
     Active Substance: TOCILIZUMAB
     Route: 042
     Dates: start: 20160517, end: 20190403
  8. ACTEMRA [Suspect]
     Active Substance: TOCILIZUMAB
     Route: 042
     Dates: start: 20190709, end: 20200901
  9. ACTEMRA [Suspect]
     Active Substance: TOCILIZUMAB
     Route: 042
     Dates: start: 20201001
  10. ACTEMRA [Suspect]
     Active Substance: TOCILIZUMAB
     Route: 042
     Dates: start: 20160517, end: 20190403
  11. ACTEMRA [Suspect]
     Active Substance: TOCILIZUMAB
     Route: 042
     Dates: start: 20190709, end: 20200901
  12. ACTEMRA [Suspect]
     Active Substance: TOCILIZUMAB
     Indication: Rheumatoid arthritis
     Dosage: ACTS4379 - DISCONTINUED DUE TO SITE REACTIONS
     Route: 058
     Dates: start: 20190501, end: 201906
  13. CLONAZEPAM [Suspect]
     Active Substance: CLONAZEPAM
     Indication: Restless legs syndrome
     Route: 065
  14. DICLOFENAC [Suspect]
     Active Substance: DICLOFENAC
     Indication: Product used for unknown indication
     Route: 065
     Dates: start: 2013
  15. ARAVA [Concomitant]
     Active Substance: LEFLUNOMIDE
  16. PANTOPRAZOLE SODIUM [Concomitant]
     Active Substance: PANTOPRAZOLE SODIUM
  17. CARDIZEM [Concomitant]
     Active Substance: DILTIAZEM HYDROCHLORIDE
  18. AVAPRO [Concomitant]
     Active Substance: IRBESARTAN
  19. CIPRALEX [Concomitant]
     Active Substance: ESCITALOPRAM OXALATE
  20. OMEGA 3 [Concomitant]
     Active Substance: CAPSAICIN
  21. ORENCIA [Concomitant]
     Active Substance: ABATACEPT
     Dates: start: 201005
  22. PREDNISONE [Concomitant]
     Active Substance: PREDNISONE
     Indication: Sinusitis
     Route: 065
     Dates: start: 201411
  23. PREDNISONE [Concomitant]
     Active Substance: PREDNISONE
     Indication: Tympanic membrane perforation
  24. ATORVASTATIN [Concomitant]
     Active Substance: ATORVASTATIN
  25. CITALOPRAM [Concomitant]
     Active Substance: CITALOPRAM HYDROBROMIDE
  26. BECLOMETHASONE [Concomitant]
     Active Substance: BECLOMETHASONE
  27. OXYCONTIN [Concomitant]
     Active Substance: OXYCODONE HYDROCHLORIDE
     Indication: Pain management
  28. FLOVENT [Concomitant]
     Active Substance: FLUTICASONE PROPIONATE
  29. IMODIUM [Concomitant]
     Active Substance: LOPERAMIDE HYDROCHLORIDE
  30. CALCIUM [Concomitant]
     Active Substance: CALCIUM

REACTIONS (16)
  - Gastrointestinal procedural complication [Recovering/Resolving]
  - Malaise [Unknown]
  - Sleep disorder [Not Recovered/Not Resolved]
  - Oxygen saturation decreased [Unknown]
  - Heart rate decreased [Unknown]
  - Blood pressure systolic increased [Unknown]
  - Movement disorder [Unknown]
  - Blood pressure diastolic abnormal [Unknown]
  - Loss of personal independence in daily activities [Unknown]
  - Pain [Unknown]
  - Joint swelling [Unknown]
  - Peripheral swelling [Unknown]
  - Grip strength decreased [Unknown]
  - Dehydration [Unknown]
  - Weight decreased [Not Recovered/Not Resolved]
  - Blood pressure systolic abnormal [Unknown]

NARRATIVE: CASE EVENT DATE: 20180911
